FAERS Safety Report 9509168 (Version 1)
Quarter: 2013Q3

REPORT INFORMATION
  Report Type: Spontaneous
  Country: US (occurrence: US)
  Receive Date: 20130909
  Receipt Date: 20130909
  Transmission Date: 20140515
  Serious: Yes (Life-Threatening, Hospitalization)
  Sender: FDA-Public Use
  Company Number: US-BRISTOL-MYERS SQUIBB COMPANY-17354499

PATIENT
  Age: 51 Year
  Sex: Female

DRUGS (1)
  1. ABILIFY [Suspect]
     Indication: BIPOLAR DISORDER
     Dosage: NG TUBE ON 28JAN13 AND 1FEB13:RESTARTED ON 03FEB13
     Dates: start: 201011

REACTIONS (1)
  - Cardiac arrest [Unknown]
